FAERS Safety Report 24555903 (Version 1)
Quarter: 2024Q4

REPORT INFORMATION
  Report Type: Spontaneous
  Country: US (occurrence: US)
  Receive Date: 20241028
  Receipt Date: 20241028
  Transmission Date: 20250115
  Serious: No
  Sender: JOHNSON AND JOHNSON
  Company Number: US-JNJFOC-20241057292

PATIENT
  Age: 10 Year
  Sex: Male

DRUGS (2)
  1. RISPERDAL [Suspect]
     Active Substance: RISPERIDONE
     Indication: Mood swings
     Dosage: VARYING DOSES OF 0.5 MG, 1 MG, 2 MG, 3 MG AND 4 MG
     Route: 048
     Dates: start: 201103
  2. RISPERDAL [Suspect]
     Active Substance: RISPERIDONE
     Indication: Behaviour disorder

REACTIONS (1)
  - Akathisia [Unknown]

NARRATIVE: CASE EVENT DATE: 20110602
